FAERS Safety Report 8534398-X (Version None)
Quarter: 2012Q3

REPORT INFORMATION
  Report Type: 
  Country: None (occurrence: None)
  Receive Date: 20120724
  Receipt Date: 20120721
  Transmission Date: 20120928
  Serious: Yes (Death, Hospitalization)
  Sender: FDA-Public Use
  Company Number: PHHY2012BR063267

PATIENT
  Sex: Female

DRUGS (1)
  1. DIOVAN [Suspect]
     Indication: HYPERTENSION
     Dosage: UNK UKN, UNK

REACTIONS (6)
  - SKIN ULCER [None]
  - THROMBOCYTOPENIA [None]
  - MULTI-ORGAN FAILURE [None]
  - SWELLING [None]
  - DEMENTIA [None]
  - ULCER [None]
